FAERS Safety Report 17071019 (Version 1)
Quarter: 2019Q4

REPORT INFORMATION
  Report Type: Report from Study
  Country: IT (occurrence: IT)
  Receive Date: 20191125
  Receipt Date: 20191125
  Transmission Date: 20200122
  Serious: Yes (Hospitalization, Other)
  Sender: FDA-Public Use
  Company Number: IT-BRISTOL-MYERS SQUIBB COMPANY-BMS-2019-108839

PATIENT
  Age: 66 Year
  Sex: Male

DRUGS (1)
  1. WARFARIN SODIUM. [Suspect]
     Active Substance: WARFARIN SODIUM
     Indication: ATRIAL FIBRILLATION
     Dosage: 5 MILLIGRAM, AS NECESSARY FOR ATRIAL FIBRILLATION
     Route: 048
     Dates: end: 20190926

REACTIONS (5)
  - Subdural haematoma [Recovering/Resolving]
  - Bradyphrenia [Recovering/Resolving]
  - Disorganised speech [Recovering/Resolving]
  - Headache [Recovering/Resolving]
  - Hypokinesia [Recovering/Resolving]

NARRATIVE: CASE EVENT DATE: 20190921
